FAERS Safety Report 4922891-8 (Version None)
Quarter: 2006Q1

REPORT INFORMATION
  Report Type: 
  Country: None (occurrence: None)
  Receive Date: 20060224
  Receipt Date: 20060217
  Transmission Date: 20060701
  Serious: Yes (Hospitalization)
  Sender: FDA-Public Use
  Company Number: PR-MERCK-0602USA04746

PATIENT
  Age: 52 Year
  Sex: Female
  Weight: 82 kg

DRUGS (3)
  1. VIOXX [Suspect]
     Indication: ARTHRITIS
     Route: 048
     Dates: start: 20000418, end: 20020815
  2. VIOXX [Suspect]
     Route: 048
     Dates: start: 20000418, end: 20020815
  3. VIOXX [Suspect]
     Route: 048
     Dates: start: 20000418, end: 20020815

REACTIONS (4)
  - ARTHROPATHY [None]
  - HYPERTENSION [None]
  - OVERDOSE [None]
  - THROMBOPHLEBITIS SUPERFICIAL [None]
